FAERS Safety Report 8877386 (Version 1)
Quarter: 2012Q4

REPORT INFORMATION
  Report Type: 
  Country: US (occurrence: US)
  Receive Date: 20121023
  Receipt Date: 20121023
  Transmission Date: 20130627
  Serious: No
  Sender: FDA-Public Use
  Company Number: US-AMGEN-USASP2012056612

PATIENT
  Age: 60 Year
  Sex: Female
  Weight: 62.13 kg

DRUGS (3)
  1. ENBREL [Suspect]
     Indication: RHEUMATOID ARTHRITIS
     Dosage: 50 mg, qwk
     Route: 058
     Dates: start: 201203
  2. PREDNISONE [Concomitant]
     Indication: RHEUMATOID ARTHRITIS
     Dosage: 5 mg, bid
     Route: 048
  3. RECLAST [Concomitant]
     Indication: OSTEOPOROSIS
     Dosage: 5 mg, annual
     Route: 042
     Dates: start: 201203

REACTIONS (1)
  - Limb injury [Recovering/Resolving]
